FAERS Safety Report 9757833 (Version 1)
Quarter: 2013Q4

REPORT INFORMATION
  Report Type: Spontaneous
  Country: FR (occurrence: FR)
  Receive Date: 20131216
  Receipt Date: 20131216
  Transmission Date: 20140711
  Serious: Yes (Hospitalization, Other)
  Sender: FDA-Public Use
  Company Number: FR-AMGEN-FRASP2013087740

PATIENT
  Age: 62 Year
  Sex: Male

DRUGS (11)
  1. ENBREL [Suspect]
     Indication: PRODUCT USED FOR UNKNOWN INDICATION
     Dosage: 50 MG, EVERY TEN DAYS
     Route: 058
     Dates: end: 201308
  2. ALTIM /00836301/ [Suspect]
     Indication: MORTON^S NEURALGIA
     Dosage: UNK
     Route: 052
     Dates: start: 20130830, end: 20130830
  3. PLAVIX [Concomitant]
     Dosage: UNK
  4. APROVEL [Concomitant]
     Dosage: UNK
  5. LOXEN [Concomitant]
     Dosage: UNK
  6. PRAVASTATIN [Concomitant]
     Dosage: UNK
  7. SPIRIVA [Concomitant]
     Dosage: UNK
  8. LEXOMIL [Concomitant]
     Dosage: UNK
  9. ATARAX                             /00058402/ [Concomitant]
     Dosage: UNK
  10. XATRAL [Concomitant]
     Dosage: SUSTAINED-RELEASE 10 MG
  11. PARIET [Concomitant]
     Dosage: UNK

REACTIONS (3)
  - Infection [Recovered/Resolved]
  - Soft tissue infection [Recovered/Resolved]
  - Injection site abscess [Recovered/Resolved]
